FAERS Safety Report 6354559-8 (Version None)
Quarter: 2009Q3

REPORT INFORMATION
  Report Type: 
  Country: None (occurrence: None)
  Receive Date: 20090909
  Receipt Date: 20090824
  Transmission Date: 20100115
  Serious: Yes (Hospitalization, Other)
  Sender: FDA-Public Use
  Company Number: 001423

PATIENT
  Sex: Male
  Weight: 78 kg

DRUGS (5)
  1. VIMPAT [Suspect]
     Indication: EPILEPSY
     Dosage: (100 MG BID, UP-TITRATION TO 200 MG ONCE DAILY OVER 6 WEEKS ORAL)
     Route: 048
     Dates: start: 20090615, end: 20090709
  2. OLANZAPINE [Concomitant]
  3. PAROXETINE HCL [Concomitant]
  4. VALPROATE SODIUM [Concomitant]
  5. TOPIRAMATE [Concomitant]

REACTIONS (4)
  - AGGRESSION [None]
  - CONVULSION [None]
  - PHYSICAL ASSAULT [None]
  - PRODUCT QUALITY ISSUE [None]
